FAERS Safety Report 10496462 (Version 3)
Quarter: 2020Q1

REPORT INFORMATION
  Report Type: Spontaneous
  Country: GB (occurrence: GB)
  Receive Date: 20141004
  Receipt Date: 20200104
  Transmission Date: 20200409
  Serious: Yes (Life-Threatening, Other)
  Sender: FDA-Public Use
  Company Number: GB-AUROBINDO-AUR-APL-2014-04815

PATIENT
  Age: 23 Year
  Sex: Male
  Weight: 88.9 kg

DRUGS (6)
  1. OLANZAPINE. [Suspect]
     Active Substance: OLANZAPINE
     Indication: SLEEP DISORDER
     Dosage: UNK
     Route: 065
  2. PROPRANOLOL [Interacting]
     Active Substance: PROPRANOLOL HYDROCHLORIDE
     Indication: PRODUCT USED FOR UNKNOWN INDICATION
     Dosage: UNK
     Route: 065
  3. CLONAZEPAM. [Interacting]
     Active Substance: CLONAZEPAM
     Indication: ANXIETY
     Dosage: UNK, AS NECESSARY (RARELY USED)
     Route: 065
  4. SERTRALINE [Concomitant]
     Active Substance: SERTRALINE HYDROCHLORIDE
     Indication: PRODUCT USED FOR UNKNOWN INDICATION
     Dosage: UNK
     Route: 065
  5. PREGABALIN. [Interacting]
     Active Substance: PREGABALIN
     Indication: ANXIETY DISORDER
     Dosage: 600 MG,ONCE A DAY,
     Route: 048
     Dates: start: 20131201
  6. PREGABALIN. [Interacting]
     Active Substance: PREGABALIN
     Dosage: 300 MILLIGRAM, ONCE A DAY (100MG IN THE MORNING 200MG IN THE EVENING)
     Route: 048
     Dates: start: 20131201

REACTIONS (18)
  - Paraesthesia [Recovered/Resolved]
  - Quality of life decreased [Recovered/Resolved]
  - Drug interaction [Unknown]
  - Sleep apnoea syndrome [Recovering/Resolving]
  - Fluid retention [Recovered/Resolved]
  - Oedema [Recovered/Resolved]
  - Disturbance in attention [Recovered/Resolved]
  - Speech disorder [Not Recovered/Not Resolved]
  - Memory impairment [Not Recovered/Not Resolved]
  - Medication error [Recovering/Resolving]
  - Depressed level of consciousness [Recovered/Resolved]
  - Dyspnoea [Recovered/Resolved]
  - Chest discomfort [Recovered/Resolved]
  - Amnesia [Recovered/Resolved]
  - Abdominal pain [Recovered/Resolved]
  - Angioedema [Recovered/Resolved]
  - Asthenia [Recovered/Resolved]
  - Photosensitivity reaction [Recovered/Resolved]

NARRATIVE: CASE EVENT DATE: 20131201
